FAERS Safety Report 5776279-0 (Version None)
Quarter: 2008Q2

REPORT INFORMATION
  Report Type: 
  Country: None (occurrence: None)
  Receive Date: 20080616
  Receipt Date: 20080529
  Transmission Date: 20081010
  Serious: Yes (Hospitalization)
  Sender: FDA-Public Use
  Company Number: 002#2#2008-00490

PATIENT
  Age: 64 Year
  Sex: Male
  Weight: 68.4932 kg

DRUGS (8)
  1. NEUPRO [Suspect]
     Indication: PARKINSON'S DISEASE
     Dosage: 2MG/24H, 1 IN 1 D, TRANSDERMAL
     Route: 062
     Dates: start: 20070901, end: 20080508
  2. ARTANE [Concomitant]
  3. ELDEPRYL [Concomitant]
  4. PERMAX [Concomitant]
  5. LIPITOR [Concomitant]
  6. PRILOSEC [Concomitant]
  7. NORVASC [Concomitant]
  8. FERROUS SULFATE TAB [Concomitant]

REACTIONS (8)
  - BLADDER CANCER [None]
  - DRUG WITHDRAWAL SYNDROME [None]
  - GAIT DISTURBANCE [None]
  - HALLUCINATION [None]
  - MOVEMENT DISORDER [None]
  - OEDEMA PERIPHERAL [None]
  - PROSTATOMEGALY [None]
  - TREMOR [None]
